FAERS Safety Report 6793208-1 (Version None)
Quarter: 2010Q2

REPORT INFORMATION
  Report Type: 
  Country: None (occurrence: None)
  Receive Date: 20100624
  Receipt Date: 20090804
  Transmission Date: 20101027
  Serious: Yes (Death)
  Sender: FDA-Public Use
  Company Number: US-MYLANLABS-2009S1014035

PATIENT
  Age: 81 Year
  Sex: Female

DRUGS (5)
  1. CLOZAPINE [Suspect]
     Indication: SCHIZOPHRENIA
     Dates: start: 20021027
  2. REQUIP [Concomitant]
  3. POTASSIUM [Concomitant]
  4. DEPAKOTE [Concomitant]
  5. STALEVO 100 [Concomitant]

REACTIONS (1)
  - DEATH [None]
